FAERS Safety Report 6849927-1 (Version None)
Quarter: 2010Q3

REPORT INFORMATION
  Report Type: 
  Country: None (occurrence: None)
  Receive Date: 20100716
  Receipt Date: 20071004
  Transmission Date: 20110219
  Serious: Yes (Other)
  Sender: FDA-Public Use
  Company Number: US-PFIZER INC-2007085451

PATIENT
  Sex: Female

DRUGS (3)
  1. CHANTIX [Suspect]
  2. INTERFERON BETA [Concomitant]
  3. CELEXA [Concomitant]

REACTIONS (3)
  - AGGRESSION [None]
  - ANGER [None]
  - MOOD ALTERED [None]
